FAERS Safety Report 8986145 (Version 1)
Quarter: 2012Q4

REPORT INFORMATION
  Report Type: Spontaneous
  Country: US (occurrence: None)
  Receive Date: 20121214
  Receipt Date: 20121214
  Transmission Date: 20130627
  Serious: Yes (Other)
  Sender: FDA-Public Use
  Company Number: NSR_00734_2012

PATIENT
  Age: 26 Year
  Sex: Female

DRUGS (2)
  1. BACLOFEN [Suspect]
     Indication: MUSCLE SPASTICITY
     Dosage: (DF dose increased consistently over the past, Intrathecal)
  2. BACLOFEN [Suspect]
     Indication: MUSCLE SPASTICITY
     Dosage: (Df, pump programmed at a lower dose, Intrathecal)

REACTIONS (7)
  - Overdose [None]
  - Dizziness [None]
  - Somnolence [None]
  - Hypotension [None]
  - Hypotonia [None]
  - Device occlusion [None]
  - Implant site mass [None]
